FAERS Safety Report 8419006-0 (Version None)
Quarter: 2012Q2

REPORT INFORMATION
  Report Type: 
  Country: None (occurrence: None)
  Receive Date: 20120607
  Receipt Date: 20120529
  Transmission Date: 20120825
  Serious: Yes (Other)
  Sender: FDA-Public Use
  Company Number: US-ASTRAZENECA-2012SE34978

PATIENT
  Age: 76 Year
  Sex: Female
  Weight: 100.7 kg

DRUGS (5)
  1. LEVOTHYROXINE SODIUM [Concomitant]
     Indication: THYROID DISORDER
  2. SPIRIVA [Concomitant]
  3. SYMBICORT [Suspect]
     Indication: EXPOSURE TO CHEMICAL POLLUTION
     Dosage: 80/4.5 TWO PUFFS, TWICE DAILY
     Route: 055
     Dates: start: 20110101
  4. SYMBICORT [Suspect]
     Indication: EMPHYSEMA
     Dosage: 80/4.5 TWO PUFFS, TWICE DAILY
     Route: 055
     Dates: start: 20110101
  5. CRESTOR [Suspect]
     Route: 048

REACTIONS (1)
  - NON-HODGKIN'S LYMPHOMA [None]
